FAERS Safety Report 12726165 (Version 2)
Quarter: 2016Q3

REPORT INFORMATION
  Report Type: Spontaneous
  Country: FR (occurrence: FR)
  Receive Date: 20160908
  Receipt Date: 20160929
  Transmission Date: 20161109
  Serious: Yes (Hospitalization, Other)
  Sender: FDA-Public Use
  Company Number: FR-GLAXOSMITHKLINE-FR2016GSK130731

PATIENT
  Age: 80 Year
  Sex: Female

DRUGS (14)
  1. VENTOLINE [Concomitant]
     Active Substance: ALBUTEROL
  2. SERETIDE [Suspect]
     Active Substance: FLUTICASONE PROPIONATE\SALMETEROL XINAFOATE
     Indication: ASTHMA
     Dosage: UNK
     Route: 055
     Dates: start: 20160316, end: 20160420
  3. SOLUPRED [Suspect]
     Active Substance: PREDNISOLONE
     Indication: ASTHMA
     Dosage: 5 MG, BID
     Route: 048
     Dates: start: 20160322, end: 20160326
  4. METHYLPREDNISOLONE. [Suspect]
     Active Substance: METHYLPREDNISOLONE
     Indication: ASTHMA
     Dosage: 40 MG, 1D
     Route: 042
     Dates: start: 20160317, end: 20160318
  5. LASILIX FAIBLE [Concomitant]
     Active Substance: FUROSEMIDE
     Dosage: 20 MG, UNK
  6. RIVOTRIL [Concomitant]
     Active Substance: CLONAZEPAM
  7. MEDROL [Suspect]
     Active Substance: METHYLPREDNISOLONE
     Indication: ASTHMA
     Dosage: 16 MG, 1D
     Route: 048
     Dates: start: 20160320, end: 20160321
  8. NEBIVOLOL. [Concomitant]
     Active Substance: NEBIVOLOL
  9. TAHOR [Concomitant]
     Active Substance: ATORVASTATIN CALCIUM
     Dosage: 10 MG, UNK
  10. INEXIUM [Concomitant]
     Active Substance: ESOMEPRAZOLE
     Dosage: 40 MG, UNK
  11. SINGULAIR [Concomitant]
     Active Substance: MONTELUKAST SODIUM
  12. ALDACTONE [Concomitant]
     Active Substance: SPIRONOLACTONE
     Dosage: 25 MG, UNK
  13. LYRICA [Concomitant]
     Active Substance: PREGABALIN
     Dosage: 75 MG, UNK
  14. ATARAX [Concomitant]
     Active Substance: HYDROXYZINE\HYDROXYZINE HYDROCHLORIDE
     Dosage: 25 MG, UNK

REACTIONS (1)
  - Diabetes mellitus inadequate control [Recovered/Resolved]

NARRATIVE: CASE EVENT DATE: 20160323
